FAERS Safety Report 4968835-4 (Version None)
Quarter: 2006Q2

REPORT INFORMATION
  Report Type: 
  Country: None (occurrence: None)
  Receive Date: 20060405
  Receipt Date: 20060329
  Transmission Date: 20061013
  Serious: Yes (Other)
  Sender: FDA-Public Use
  Company Number: 2006043918

PATIENT
  Sex: Female

DRUGS (3)
  1. LYRICA [Suspect]
     Indication: ILL-DEFINED DISORDER
     Dosage: 500 MG
  2. AMBIEN [Suspect]
     Indication: ILL-DEFINED DISORDER
  3. LORTAB [Suspect]
     Indication: ILL-DEFINED DISORDER

REACTIONS (4)
  - NEUROPATHY [None]
  - ROAD TRAFFIC ACCIDENT [None]
  - SOMNOLENCE [None]
  - SPINAL ROD INSERTION [None]
